FAERS Safety Report 23748146 (Version 11)
Quarter: 2025Q2

REPORT INFORMATION
  Report Type: Report from Study
  Country: CO (occurrence: CO)
  Receive Date: 20240416
  Receipt Date: 20250521
  Transmission Date: 20250717
  Serious: Yes (Other)
  Sender: NOVARTIS
  Company Number: CO-002147023-NVSC2024CO078318

PATIENT
  Age: 63 Year
  Sex: Male
  Weight: 64 kg

DRUGS (8)
  1. COSENTYX [Suspect]
     Active Substance: SECUKINUMAB
     Indication: Ankylosing spondylitis
     Dosage: 150 MG, QMO
     Route: 058
     Dates: start: 20140428
  2. COSENTYX [Suspect]
     Active Substance: SECUKINUMAB
     Route: 065
     Dates: start: 20240623
  3. COSENTYX [Suspect]
     Active Substance: SECUKINUMAB
     Route: 065
     Dates: start: 20250218
  4. COSENTYX [Suspect]
     Active Substance: SECUKINUMAB
     Dosage: 150 MILLIGRAM PER MILLILITRE, QMO
     Route: 058
  5. ETORICOXIB [Concomitant]
     Active Substance: ETORICOXIB
     Indication: Product used for unknown indication
     Dosage: 1 DOSAGE FORM, QD (COVERED TABLET) (90 MG)
     Route: 048
  6. MIRABEGRON [Concomitant]
     Active Substance: MIRABEGRON
     Indication: Product used for unknown indication
     Dosage: 1 DOSAGE FORM, QD (50 MG) (TABLET)
     Route: 048
  7. TADALAFIL [Concomitant]
     Active Substance: TADALAFIL
     Indication: Product used for unknown indication
     Dosage: 1 DOSAGE FORM, Q12H, 5 MG (TABLET EVERY 12 HOURS FOR 60 DAYS. REFORMULATED FOR 12 MONTHS)
     Route: 048
  8. SOLIFENACIN [Concomitant]
     Active Substance: SOLIFENACIN
     Indication: Product used for unknown indication
     Dosage: 1 DOSAGE FORM, Q12H (TABLET EVERY 12 HOURS FOR 60 DAYS. REFORMULATED FOR 12 MONTHS)
     Route: 048

REACTIONS (29)
  - Decreased immune responsiveness [Not Recovered/Not Resolved]
  - Haemorrhage [Unknown]
  - Haematochezia [Not Recovered/Not Resolved]
  - Haematuria [Not Recovered/Not Resolved]
  - Asthenia [Not Recovered/Not Resolved]
  - Headache [Not Recovered/Not Resolved]
  - Neoplasm malignant [Not Recovered/Not Resolved]
  - Incontinence [Recovered/Resolved]
  - Prostate cancer [Not Recovered/Not Resolved]
  - Asphyxia [Not Recovered/Not Resolved]
  - Malaise [Unknown]
  - Weight decreased [Unknown]
  - Discomfort [Unknown]
  - Spinal pain [Not Recovered/Not Resolved]
  - Arthralgia [Recovering/Resolving]
  - Chest pain [Not Recovered/Not Resolved]
  - Pain in extremity [Not Recovered/Not Resolved]
  - Calcium ionised increased [Unknown]
  - White blood cell count decreased [Unknown]
  - Red cell distribution width increased [Unknown]
  - Lymphocyte count decreased [Unknown]
  - Basophil count decreased [Unknown]
  - Eosinophil count decreased [Unknown]
  - Immunoglobulins decreased [Unknown]
  - Blood creatinine increased [Unknown]
  - Back pain [Unknown]
  - Musculoskeletal chest pain [Unknown]
  - Neck pain [Unknown]
  - Blood testosterone decreased [Unknown]

NARRATIVE: CASE EVENT DATE: 20241213
